FAERS Safety Report 8984763 (Version 1)
Quarter: 2012Q4

REPORT INFORMATION
  Report Type: 
  Country: US (occurrence: US)
  Receive Date: 20121226
  Receipt Date: 20121226
  Transmission Date: 20130627
  Serious: Yes (Hospitalization)
  Sender: FDA-Public Use
  Company Number: US-BAYER-2012-134111

PATIENT
  Age: 32 Year
  Sex: Female

DRUGS (6)
  1. YAZ [Suspect]
  2. PRAVACHOL [Concomitant]
  3. ALDACTONE [SPIRONOLACTONE] [Concomitant]
  4. PRAVASTATIN [Concomitant]
     Dosage: UNK
  5. METOPROLOL [Concomitant]
  6. LISINOPRIL [Concomitant]

REACTIONS (1)
  - Pulmonary embolism [None]
